FAERS Safety Report 6200503-3 (Version None)
Quarter: 2009Q2

REPORT INFORMATION
  Report Type: 
  Country: None (occurrence: None)
  Receive Date: 20090522
  Receipt Date: 20090511
  Transmission Date: 20091009
  Serious: Yes (Life-Threatening, Hospitalization)
  Sender: FDA-Public Use
  Company Number: GB-AMGEN-US347132

PATIENT
  Age: 50 Year
  Sex: Female
  Weight: 70 kg

DRUGS (6)
  1. ENBREL [Suspect]
     Indication: RHEUMATOID ARTHRITIS
     Route: 058
     Dates: start: 20080718, end: 20090226
  2. METHOTREXATE [Suspect]
     Indication: RHEUMATOID ARTHRITIS
     Route: 048
     Dates: start: 20000331, end: 20090226
  3. LEVOTHYROXINE SODIUM [Concomitant]
     Dosage: 100MCG FREQUENCY UNKNOWN
  4. FERROUS SULFATE TAB [Concomitant]
     Route: 048
  5. LANSOPRAZOLE [Concomitant]
     Dosage: 30MG FREQUENCY UNKNOWN
     Route: 048
  6. AMITRIPTLINE HYDROCHLORIDE TAB [Concomitant]
     Dosage: 25MG FREQUENCY UNKNOWN
     Route: 048

REACTIONS (1)
  - PNEUMOCYSTIS JIROVECI PNEUMONIA [None]
